FAERS Safety Report 14669587 (Version 2)
Quarter: 2018Q2

REPORT INFORMATION
  Report Type: Spontaneous
  Country: US (occurrence: US)
  Receive Date: 20180322
  Receipt Date: 20180403
  Transmission Date: 20180711
  Serious: Yes (Other)
  Sender: FDA-Public Use
  Company Number: US-IMPAX LABORATORIES, INC-2018-IPXL-00918

PATIENT
  Age: 34 Year
  Sex: Female

DRUGS (1)
  1. ALBENZA [Suspect]
     Active Substance: ALBENDAZOLE
     Indication: PRODUCT USED FOR UNKNOWN INDICATION
     Dosage: 200 MG, 2 TABLETS ONCE DAILY
     Route: 048
     Dates: start: 20180312

REACTIONS (3)
  - Palpitations [Unknown]
  - Fatigue [Unknown]
  - Yellow skin [Unknown]

NARRATIVE: CASE EVENT DATE: 20180315
